FAERS Safety Report 13649415 (Version 2)
Quarter: 2017Q2

REPORT INFORMATION
  Report Type: Spontaneous
  Country: FI (occurrence: FI)
  Receive Date: 20170613
  Receipt Date: 20170622
  Transmission Date: 20170830
  Serious: Yes (Life-Threatening, Hospitalization, Other)
  Sender: FDA-Public Use
  Company Number: FI-009507513-1706FIN004607

PATIENT
  Age: 71 Year
  Sex: Male

DRUGS (2)
  1. MEROPENEM. [Concomitant]
     Active Substance: MEROPENEM
     Dosage: UNK
     Dates: start: 20170513, end: 20170518
  2. INVANZ [Suspect]
     Active Substance: ERTAPENEM SODIUM
     Indication: ERYSIPELAS
     Dosage: 1 G, QD
     Dates: start: 20170518, end: 20170607

REACTIONS (2)
  - Confusional state [Recovered/Resolved]
  - Delirium [Recovered/Resolved]

NARRATIVE: CASE EVENT DATE: 2017
